FAERS Safety Report 5592547-X (Version None)
Quarter: 2008Q1

REPORT INFORMATION
  Report Type: 
  Country: None (occurrence: None)
  Receive Date: 20080111
  Receipt Date: 20080102
  Transmission Date: 20080703
  Serious: Yes (Death, Other)
  Sender: FDA-Public Use
  Company Number: 08H-161-0313651-00

PATIENT
  Age: 9 Year
  Sex: Male

DRUGS (3)
  1. VANCOMYCIN HYDROCHLORIDE [Suspect]
     Indication: STAPHYLOCOCCAL INFECTION
  2. ASPIRIN [Concomitant]
  3. AMIKACIN [Concomitant]

REACTIONS (10)
  - AORTIC VALVE INCOMPETENCE [None]
  - BICUSPID AORTIC VALVE [None]
  - BICYTOPENIA [None]
  - HAEMORRHAGE [None]
  - HISTIOCYTOSIS HAEMATOPHAGIC [None]
  - INFUSION RELATED REACTION [None]
  - LUNG INFECTION [None]
  - NO THERAPEUTIC RESPONSE [None]
  - RED MAN SYNDROME [None]
  - RENAL FAILURE [None]
